FAERS Safety Report 9734394 (Version 4)
Quarter: 2014Q2

REPORT INFORMATION
  Report Type: Not Available
  Country: FR (occurrence: FR)
  Receive Date: 20131206
  Receipt Date: 20140509
  Transmission Date: 20141212
  Serious: Yes (Hospitalization)
  Sender: FDA-Public Use
  Company Number: FR-BEH-2013037879

PATIENT
  Age: 41 Year
  Sex: Female

DRUGS (12)
  1. PRIVIGEN [Suspect]
     Indication: IMMUNE THROMBOCYTOPENIC PURPURA
     Dosage: 6 VIALS
     Dates: start: 20130710, end: 20130715
  2. PRIVIGEN [Suspect]
     Dosage: 4 VIALS
     Dates: start: 20130710, end: 20130715
  3. PRIVIGEN [Suspect]
     Dosage: 5 VIALS
     Dates: start: 20130710, end: 20130715
  4. CORTANCYL [Suspect]
     Indication: IMMUNE THROMBOCYTOPENIC PURPURA
     Dosage: 1 MG/KG
     Route: 048
     Dates: start: 20130710, end: 20130715
  5. CEFOTAXIME [Suspect]
     Indication: SINUSITIS
     Route: 042
     Dates: end: 20130717
  6. TAVANIC [Suspect]
     Indication: SINUSITIS
     Route: 042
     Dates: end: 20130717
  7. TRIFLUCAN [Concomitant]
     Indication: VULVOVAGINAL MYCOTIC INFECTION
     Route: 067
  8. MACROLIDE [Concomitant]
  9. CLAFORAN [Concomitant]
  10. IMMUNOGLOBULINS [Concomitant]
  11. CORTICOSTEROID NOS [Concomitant]
  12. CIFLOX [Concomitant]

REACTIONS (2)
  - Thrombocytosis [Recovered/Resolved]
  - Haemolytic anaemia [Recovered/Resolved]
